FAERS Safety Report 7772526-4 (Version None)
Quarter: 2011Q3

REPORT INFORMATION
  Report Type: 
  Country: None (occurrence: None)
  Receive Date: 20110922
  Receipt Date: 20101101
  Transmission Date: 20111222
  Serious: No
  Sender: FDA-Public Use
  Company Number: US-ASTRAZENECA-2010SE52014

PATIENT
  Age: 754 Month
  Sex: Female
  Weight: 99.3 kg

DRUGS (7)
  1. LISINOPRIL AND HYDROCHLOROTHIAZIDE [Concomitant]
  2. ALPRAZOLAM [Concomitant]
  3. MOBIX [Concomitant]
  4. SEROQUEL XR [Suspect]
     Route: 048
     Dates: start: 20101001
  5. SEROQUEL XR [Suspect]
     Indication: DEPRESSION
     Route: 048
     Dates: start: 20080101, end: 20101001
  6. LORTAB [Concomitant]
  7. MUSCLE RELAXANTS [Concomitant]

REACTIONS (4)
  - DEPRESSION [None]
  - MENTAL DISABILITY [None]
  - ACTIVITIES OF DAILY LIVING IMPAIRED [None]
  - WRONG TECHNIQUE IN DRUG USAGE PROCESS [None]
